FAERS Safety Report 9017682 (Version 2)
Quarter: 2013Q3

REPORT INFORMATION
  Report Type: Spontaneous
  Country: PH (occurrence: PH)
  Receive Date: 20130118
  Receipt Date: 20130725
  Transmission Date: 20140515
  Serious: Yes (Death, Other)
  Sender: FDA-Public Use
  Company Number: PH-009507513-1301PHL006129

PATIENT
  Age: 85 Year
  Sex: Female

DRUGS (3)
  1. JANUVIA [Suspect]
     Indication: DIABETES MELLITUS
     Dosage: 1 DF, QD
     Route: 048
     Dates: start: 2012
  2. ISOKET [Concomitant]
     Dosage: UNK
  3. CARDIOSEL [Concomitant]
     Dosage: UNK

REACTIONS (1)
  - Cardiac arrest [Fatal]
